FAERS Safety Report 12551909 (Version 1)
Quarter: 2016Q3

REPORT INFORMATION
  Report Type: Spontaneous
  Country: FR (occurrence: FR)
  Receive Date: 20160713
  Receipt Date: 20160713
  Transmission Date: 20161109
  Serious: Yes (Death)
  Sender: FDA-Public Use
  Company Number: FR-SA-2016SA126877

PATIENT
  Age: 84 Year
  Sex: Male

DRUGS (18)
  1. RIFAMPICINE [Suspect]
     Active Substance: RIFAMPIN
     Indication: STAPHYLOCOCCAL INFECTION
     Route: 048
     Dates: start: 20160315, end: 20160423
  2. OFLOCET [Suspect]
     Active Substance: OFLOXACIN
     Indication: STAPHYLOCOCCAL INFECTION
     Route: 048
     Dates: start: 20160315, end: 20160423
  3. OMIX [Concomitant]
     Active Substance: TAMSULOSIN HYDROCHLORIDE
  4. DUROGESIC [Concomitant]
     Active Substance: FENTANYL
     Dates: end: 20160424
  5. KARDEGIC [Concomitant]
     Active Substance: ASPIRIN LYSINE
     Dates: end: 20160424
  6. OFLOCET [Suspect]
     Active Substance: OFLOXACIN
     Indication: SEPSIS
     Route: 065
  7. INEXIUM [Concomitant]
     Active Substance: ESOMEPRAZOLE
  8. LANSOYL [Concomitant]
     Active Substance: MINERAL OIL
  9. CACIT D3 [Concomitant]
     Active Substance: CALCIUM\CHOLECALCIFEROL
  10. OFLOCET [Suspect]
     Active Substance: OFLOXACIN
     Indication: STAPHYLOCOCCAL INFECTION
     Route: 065
  11. NEBIVOLOL. [Concomitant]
     Active Substance: NEBIVOLOL
  12. RIFAMPICINE [Suspect]
     Active Substance: RIFAMPIN
     Indication: SEPSIS
     Route: 065
  13. RIFAMPICINE [Suspect]
     Active Substance: RIFAMPIN
     Indication: STAPHYLOCOCCAL INFECTION
     Route: 065
  14. MOVICOL [Concomitant]
     Active Substance: POLYETHYLENE GLYCOL 3350\POTASSIUM CHLORIDE\SODIUM BICARBONATE\SODIUM CHLORIDE
  15. OFLOCET [Suspect]
     Active Substance: OFLOXACIN
     Indication: SEPSIS
     Route: 048
     Dates: start: 20160315, end: 20160423
  16. SERESTA [Concomitant]
     Active Substance: OXAZEPAM
  17. RIFAMPICINE [Suspect]
     Active Substance: RIFAMPIN
     Indication: SEPSIS
     Route: 048
     Dates: start: 20160315, end: 20160423
  18. SPECIAFOLDINE [Concomitant]
     Active Substance: FOLIC ACID

REACTIONS (2)
  - Vasculitis [Fatal]
  - Pancytopenia [Fatal]

NARRATIVE: CASE EVENT DATE: 20160423
